FAERS Safety Report 6030629-9 (Version None)
Quarter: 2009Q1

REPORT INFORMATION
  Report Type: 
  Country: None (occurrence: None)
  Receive Date: 20090107
  Receipt Date: 20090102
  Transmission Date: 20090719
  Serious: Yes (Other)
  Sender: FDA-Public Use
  Company Number: US-AMGEN-QUU326590

PATIENT
  Sex: Female

DRUGS (2)
  1. ENBREL [Suspect]
     Indication: RHEUMATOID ARTHRITIS
     Route: 058
     Dates: start: 20070209
  2. METHOTREXATE [Concomitant]
     Route: 048

REACTIONS (3)
  - HEPATIC CYST [None]
  - PANCREATIC CYST [None]
  - UPPER RESPIRATORY TRACT INFECTION [None]
